FAERS Safety Report 6138330-8 (Version None)
Quarter: 2009Q1

REPORT INFORMATION
  Report Type: 
  Country: None (occurrence: None)
  Receive Date: 20090327
  Receipt Date: 20090327
  Transmission Date: 20090719
  Serious: Yes (Disabling)
  Sender: FDA-Public Use
  Company Number: None

PATIENT
  Age: 66 Year
  Sex: Male
  Weight: 115.6672 kg

DRUGS (1)
  1. ZICAM COLD REMEDY NASAL GEL ZINCUM GLUCONICUM 2X ZICAM LLC; MATRIXX IN [Suspect]
     Indication: NASOPHARYNGITIS
     Dosage: 1 APPLICATION EVERY 4 HOURS NASAL
     Route: 045
     Dates: start: 20090221, end: 20090221

REACTIONS (3)
  - ANOSMIA [None]
  - BURNING SENSATION [None]
  - HYPOGEUSIA [None]
